FAERS Safety Report 17225593 (Version 1)
Quarter: 2020Q1

REPORT INFORMATION
  Report Type: Spontaneous
  Country: US (occurrence: US)
  Receive Date: 20200102
  Receipt Date: 20200102
  Transmission Date: 20200409
  Serious: No
  Sender: FDA-Public Use
  Company Number: US-ASTRAZENECA-2019SF75257

PATIENT
  Age: 854 Month
  Sex: Female
  Weight: 108.9 kg

DRUGS (7)
  1. PROAIR HFA [Concomitant]
     Active Substance: ALBUTEROL SULFATE
     Indication: ASTHMA
     Dosage: AS REQUIRED
     Route: 055
  2. SUPER B COMPLEX VITAMIN [Concomitant]
     Indication: PROPHYLAXIS
     Route: 048
  3. METOPROLOL SUCC ER [Concomitant]
     Active Substance: METOPROLOL SUCCINATE
     Indication: HYPERTENSION
     Route: 048
  4. SINGULAIR GENERIC [Concomitant]
     Active Substance: MONTELUKAST SODIUM
     Indication: PROPHYLAXIS
     Route: 048
  5. VITAMIN D3 [Concomitant]
     Active Substance: CHOLECALCIFEROL
     Indication: VITAMIN D DECREASED
     Route: 048
  6. LISINOPRIL HCTZ [Concomitant]
     Active Substance: HYDROCHLOROTHIAZIDE\LISINOPRIL
     Indication: HYPERTENSION
     Route: 048
  7. PULMICORT FLEXHALER [Suspect]
     Active Substance: BUDESONIDE
     Indication: ASTHMA
     Dosage: 90 UG 1 PUFF TWICE DAILY
     Route: 055

REACTIONS (8)
  - Dyspnoea [Recovering/Resolving]
  - Intentional device misuse [Unknown]
  - Hypersensitivity [Recovering/Resolving]
  - Drug dose omission by device [Unknown]
  - Upper respiratory tract congestion [Recovering/Resolving]
  - Wheezing [Recovering/Resolving]
  - Productive cough [Recovering/Resolving]
  - Device issue [Unknown]

NARRATIVE: CASE EVENT DATE: 201911
